FAERS Safety Report 24131987 (Version 1)
Quarter: 2024Q3

REPORT INFORMATION
  Report Type: Spontaneous
  Country: JP (occurrence: JP)
  Receive Date: 20240724
  Receipt Date: 20240724
  Transmission Date: 20241017
  Serious: Yes (Other)
  Sender: UPSHER SMITH LABORATORIES
  Company Number: JP-UPSHER-SMITH LABORATORIES, LLC-20240700016

PATIENT
  Sex: Male

DRUGS (2)
  1. AMANTADINE HYDROCHLORIDE [Suspect]
     Active Substance: AMANTADINE HYDROCHLORIDE
     Indication: Tardive dyskinesia
     Dosage: 100 MG, DAILY
     Route: 065
     Dates: start: 202208, end: 202303
  2. AMANTADINE HYDROCHLORIDE [Suspect]
     Active Substance: AMANTADINE HYDROCHLORIDE
     Dosage: 50 MG, DAILY
     Route: 065
     Dates: start: 202303

REACTIONS (3)
  - Tardive dyskinesia [Unknown]
  - Condition aggravated [Unknown]
  - Off label use [Unknown]

NARRATIVE: CASE EVENT DATE: 20220801
